FAERS Safety Report 7753525-5 (Version None)
Quarter: 2011Q3

REPORT INFORMATION
  Report Type: 
  Country: None (occurrence: None)
  Receive Date: 20110913
  Receipt Date: 20110907
  Transmission Date: 20111222
  Serious: Yes (Other)
  Sender: FDA-Public Use
  Company Number: 2011SP042301

PATIENT
  Age: 61 Year
  Sex: Female

DRUGS (5)
  1. LYRICA [Suspect]
     Indication: PRODUCT USED FOR UNKNOWN INDICATION
     Dosage: 50 MG;TID
  2. QUETIAPINE [Concomitant]
  3. LORAZEPAM [Concomitant]
  4. MIRTAZAPINE [Suspect]
     Indication: PRODUCT USED FOR UNKNOWN INDICATION
     Dosage: 45 MG;QD
  5. ZOPICLONE [Concomitant]

REACTIONS (3)
  - OEDEMA PERIPHERAL [None]
  - JOINT SWELLING [None]
  - HEPATIC STEATOSIS [None]
